FAERS Safety Report 24791047 (Version 1)
Quarter: 2024Q4

REPORT INFORMATION
  Report Type: Spontaneous
  Country: US (occurrence: US)
  Receive Date: 20241230
  Receipt Date: 20241230
  Transmission Date: 20250115
  Serious: Yes (Hospitalization)
  Sender: DAIICHI
  Company Number: US-DSJP-DS-2024-117270-US

PATIENT
  Age: 57 Year
  Sex: Female

DRUGS (1)
  1. VANFLYTA [Suspect]
     Active Substance: QUIZARTINIB DIHYDROCHLORIDE
     Indication: Acute myeloid leukaemia
     Dosage: 17.7 MG, QD
     Route: 048
     Dates: start: 202406

REACTIONS (1)
  - Infection [Unknown]
